FAERS Safety Report 10060941 (Version 2)
Quarter: 2014Q2

REPORT INFORMATION
  Report Type: Spontaneous
  Country: US (occurrence: US)
  Receive Date: 20140404
  Receipt Date: 20140508
  Transmission Date: 20141212
  Serious: Yes (Hospitalization)
  Sender: FDA-Public Use
  Company Number: US-ABBVIE-14P-163-1218032-00

PATIENT
  Sex: Male
  Weight: 90.8 kg

DRUGS (12)
  1. VICODIN 5/500 [Suspect]
     Indication: MUSCLE SPASMS
     Dosage: 1 IN 8 HOUR
     Route: 048
     Dates: end: 201403
  2. VICODIN 5/500 [Suspect]
     Indication: GROIN PAIN
     Route: 048
     Dates: start: 201403
  3. VICODIN 5/500 [Suspect]
     Indication: PAIN
  4. VICODIN ES 7.5/300  (MIKART) [Suspect]
     Indication: MUSCLE SPASMS
     Dosage: 30 PILLS GIVEN OF THE 7.5/300, TOOK 3, 4, 5 TABLETS AT TIME; 1 IN 8 HOURS
     Route: 048
     Dates: start: 20140317
  5. VICODIN ES 7.5/300  (MIKART) [Suspect]
     Indication: GROIN PAIN
  6. VICODIN ES 7.5/300  (MIKART) [Suspect]
     Indication: PAIN
  7. ALTACE [Concomitant]
     Indication: HYPERTENSION
  8. NEXIUM [Concomitant]
     Indication: GASTROOESOPHAGEAL REFLUX DISEASE
  9. LIPITOR [Concomitant]
     Indication: BLOOD CHOLESTEROL INCREASED
  10. TUDORZA PRESSAIR [Concomitant]
     Indication: CHRONIC OBSTRUCTIVE PULMONARY DISEASE
  11. TRAZODONE [Concomitant]
     Indication: SLEEP DISORDER
  12. ZOLOFT [Concomitant]
     Indication: DEPRESSION

REACTIONS (7)
  - Muscle spasms [Recovered/Resolved]
  - Muscle spasms [Not Recovered/Not Resolved]
  - Drug ineffective [Not Recovered/Not Resolved]
  - Abasia [Not Recovered/Not Resolved]
  - Incorrect dose administered [Not Recovered/Not Resolved]
  - Constipation [Recovered/Resolved]
  - Product quality issue [Unknown]
